FAERS Safety Report 24372721 (Version 2)
Quarter: 2024Q4

REPORT INFORMATION
  Report Type: Spontaneous
  Country: JP (occurrence: JP)
  Receive Date: 20240927
  Receipt Date: 20241008
  Transmission Date: 20250115
  Serious: Yes (Death, Hospitalization, Other)
  Sender: PFIZER
  Company Number: JP-PFIZER INC-PV202400124262

PATIENT
  Age: 84 Year
  Sex: Female

DRUGS (4)
  1. BEVACIZUMAB [Suspect]
     Active Substance: BEVACIZUMAB
     Indication: Hepatocellular carcinoma
     Dosage: CYCLIC (THIRD-LINE THERAPY) (ATZ+BV 08 COURSES)
  2. ATEZOLIZUMAB [Suspect]
     Active Substance: ATEZOLIZUMAB
     Indication: Hepatocellular carcinoma
     Dosage: CYCLIC (THIRD-LINE THERAPY)( ATZ+BV 08 COURSES)
  3. ATEZOLIZUMAB [Suspect]
     Active Substance: ATEZOLIZUMAB
     Dosage: CYCLIC (ATZ ALONE 22 COURSES)
  4. GLECAPREVIR\PIBRENTASVIR [Concomitant]
     Active Substance: GLECAPREVIR\PIBRENTASVIR
     Indication: Chronic hepatitis C
     Dosage: UNK

REACTIONS (3)
  - Immune thrombocytopenia [Fatal]
  - Haemorrhage intracranial [Fatal]
  - Off label use [Unknown]
